FAERS Safety Report 21177322 (Version 1)
Quarter: 2022Q3

REPORT INFORMATION
  Report Type: Spontaneous
  Country: US (occurrence: US)
  Receive Date: 20220805
  Receipt Date: 20220805
  Transmission Date: 20221026
  Serious: No
  Sender: FDA-Public Use
  Company Number: US-ALLERGAN-2221735US

PATIENT

DRUGS (1)
  1. VUITY [Suspect]
     Active Substance: PILOCARPINE HYDROCHLORIDE
     Indication: Product used for unknown indication
     Dosage: UNK
     Route: 047

REACTIONS (8)
  - Scleral discolouration [Unknown]
  - Eye disorder [Unknown]
  - Metamorphopsia [Unknown]
  - Chromatopsia [Unknown]
  - Condition aggravated [Unknown]
  - Headache [Unknown]
  - Eye irritation [Unknown]
  - Drug ineffective [Unknown]
